FAERS Safety Report 8248148-8 (Version None)
Quarter: 2012Q1

REPORT INFORMATION
  Report Type: 
  Country: None (occurrence: None)
  Receive Date: 20120330
  Receipt Date: 20120319
  Transmission Date: 20120608
  Serious: Yes (Death)
  Sender: FDA-Public Use
  Company Number: JP-ROCHE-1053462

PATIENT
  Sex: Female

DRUGS (11)
  1. ACETAMINOPHEN [Concomitant]
  2. MONTELUKAST SODIUM [Concomitant]
     Dates: start: 20090724
  3. LYRICA [Concomitant]
     Dates: start: 20111003
  4. PROCATEROL HCL [Concomitant]
     Dates: start: 20110527
  5. NEUROTROPIN [Concomitant]
  6. RISPERDAL [Concomitant]
     Dates: start: 20050101
  7. ALLEGRA [Concomitant]
     Dates: start: 20091202
  8. SILECE [Concomitant]
     Dates: start: 20050101
  9. HIRNAMIN [Concomitant]
     Dates: start: 20050101
  10. OMALIZUMAB [Suspect]
     Indication: PRODUCT USED FOR UNKNOWN INDICATION
     Dates: start: 20111115
  11. PREDNISOLONE [Concomitant]

REACTIONS (1)
  - COMPLETED SUICIDE [None]
